FAERS Safety Report 16312182 (Version 1)
Quarter: 2019Q2

REPORT INFORMATION
  Report Type: Spontaneous
  Country: US (occurrence: US)
  Receive Date: 20190515
  Receipt Date: 20190515
  Transmission Date: 20190711
  Serious: No
  Sender: FDA-Public Use
  Company Number: US-AMGEN-USASP2019074591

PATIENT
  Age: 71 Year
  Sex: Male

DRUGS (4)
  1. RED YEAST RICE [Concomitant]
     Active Substance: DIETARY SUPPLEMENT
  2. REPATHA [Suspect]
     Active Substance: EVOLOCUMAB
     Indication: CORONARY ARTERY DISEASE
  3. REPATHA [Suspect]
     Active Substance: EVOLOCUMAB
     Indication: BLOOD CHOLESTEROL INCREASED
     Dosage: 140 MILLIGRAM, QMO
     Route: 065
  4. REPATHA [Suspect]
     Active Substance: EVOLOCUMAB
     Indication: DRUG INTOLERANCE

REACTIONS (3)
  - Fatigue [Not Recovered/Not Resolved]
  - Nasal congestion [Not Recovered/Not Resolved]
  - Pain [Not Recovered/Not Resolved]
